FAERS Safety Report 21423668 (Version 1)
Quarter: 2022Q4

REPORT INFORMATION
  Report Type: Spontaneous
  Country: US (occurrence: None)
  Receive Date: 20221007
  Receipt Date: 20221007
  Transmission Date: 20230113
  Serious: No
  Sender: FDA-Public Use
  Company Number: None

PATIENT
  Age: 43 Year
  Sex: Male
  Weight: 85.5 kg

DRUGS (4)
  1. TRINTELLIX [Suspect]
     Active Substance: VORTIOXETINE HYDROBROMIDE
     Indication: Product used for unknown indication
     Dosage: FREQUENCY : DAILY;?
     Route: 048
     Dates: start: 20220912, end: 20221003
  2. EFFEXOR [Concomitant]
     Active Substance: VENLAFAXINE HYDROCHLORIDE
  3. FENOFIBRATE [Concomitant]
     Active Substance: FENOFIBRATE
  4. ROSUVASTATIN [Concomitant]
     Active Substance: ROSUVASTATIN

REACTIONS (8)
  - Feeling abnormal [None]
  - Fatigue [None]
  - Irritability [None]
  - Anger [None]
  - Malaise [None]
  - Malaise [None]
  - Nasopharyngitis [None]
  - Influenza like illness [None]

NARRATIVE: CASE EVENT DATE: 20221003
